FAERS Safety Report 6368633-3 (Version None)
Quarter: 2009Q3

REPORT INFORMATION
  Report Type: 
  Country: None (occurrence: None)
  Receive Date: 20090922
  Receipt Date: 20090918
  Transmission Date: 20100115
  Serious: Yes (Other)
  Sender: FDA-Public Use
  Company Number: US-JNJFOC-20090906161

PATIENT
  Sex: Female
  Weight: 97.52 kg

DRUGS (7)
  1. INVEGA [Suspect]
     Indication: BIPOLAR DISORDER
     Route: 048
  2. OXYCONTIN [Concomitant]
     Indication: PAIN
  3. ROXICODONE [Concomitant]
     Indication: PAIN
  4. LAMICTAL [Concomitant]
  5. CLONOPIN [Concomitant]
     Indication: ANXIETY
  6. SYNTHROID [Concomitant]
     Indication: HYPOTHYROIDISM
  7. RESTORIL [Concomitant]
     Indication: SLEEP DISORDER THERAPY

REACTIONS (4)
  - CONFUSIONAL STATE [None]
  - DIPLOPIA [None]
  - SOMNOLENCE [None]
  - VISION BLURRED [None]
